FAERS Safety Report 11844485 (Version 2)
Quarter: 2016Q3

REPORT INFORMATION
  Report Type: Spontaneous
  Country: IT (occurrence: IT)
  Receive Date: 20151217
  Receipt Date: 20160719
  Transmission Date: 20161109
  Serious: Yes (Hospitalization)
  Sender: FDA-Public Use
  Company Number: IT-ROCHE-1678596

PATIENT
  Age: 47 Year
  Sex: Female
  Weight: 100 kg

DRUGS (7)
  1. ZUGLIMET [Concomitant]
     Active Substance: METFORMIN HYDROCHLORIDE
     Indication: DIABETES MELLITUS
     Dosage: ^500 MG FILM-COATED TABLETS^ 30 TABLETS
     Route: 048
     Dates: start: 20150528
  2. MABTHERA [Suspect]
     Active Substance: RITUXIMAB
     Indication: SYSTEMIC LUPUS ERYTHEMATOSUS
     Dosage: 500MG 1 VIAL OF 50ML, CONCENTRATE FOR SOLUTION FOR INTRAVENOUS INFUSION
     Route: 042
     Dates: start: 20150525, end: 20150525
  3. PLAQUENIL [Concomitant]
     Active Substance: HYDROXYCHLOROQUINE SULFATE
     Indication: SJOGREN^S SYNDROME
     Dosage: 200 MG COATED TABLETS^ 30 TABLETS
     Route: 048
     Dates: start: 20150528
  4. NORVASC [Concomitant]
     Active Substance: AMLODIPINE BESYLATE
     Indication: HYPERTENSION
     Dosage: ^5 MG TABLETS^ 28 TABLETS
     Route: 048
     Dates: start: 20150528
  5. TRIATEC (ITALY) [Concomitant]
     Active Substance: RAMIPRIL
     Indication: HYPERTENSION
     Dosage: ^5 MG TABLETS^ 14 SCORED TABLETS
     Route: 048
     Dates: start: 20150528
  6. MABTHERA [Suspect]
     Active Substance: RITUXIMAB
     Dosage: 500MG 1 VIAL OF 50ML
     Route: 042
     Dates: start: 20150707, end: 20150707
  7. DELTACORTENE [Concomitant]
     Active Substance: PREDNISONE
     Dosage: ^25 MG TABLETS^ 10 TABLETS
     Route: 048
     Dates: start: 20150528

REACTIONS (4)
  - Hyperpyrexia [Recovered/Resolved]
  - Musculoskeletal pain [Recovered/Resolved]
  - C-reactive protein increased [Recovered/Resolved]
  - Off label use [Unknown]

NARRATIVE: CASE EVENT DATE: 20150609
